FAERS Safety Report 21962418 (Version 1)
Quarter: 2023Q1

REPORT INFORMATION
  Report Type: Spontaneous
  Country: US (occurrence: US)
  Receive Date: 20230207
  Receipt Date: 20230207
  Transmission Date: 20230418
  Serious: Yes (Other)
  Sender: FDA-Public Use
  Company Number: US-BRISTOL-MYERS SQUIBB COMPANY-2023-017013

PATIENT
  Age: 81 Year
  Sex: Female
  Weight: 78.93 kg

DRUGS (2)
  1. POMALYST [Suspect]
     Active Substance: POMALIDOMIDE
     Indication: Plasma cell myeloma
     Route: 048
  2. XPOVIO [Concomitant]
     Active Substance: SELINEXOR
     Indication: Product used for unknown indication

REACTIONS (2)
  - Fall [Recovering/Resolving]
  - Sternal fracture [Recovering/Resolving]

NARRATIVE: CASE EVENT DATE: 20230101
